FAERS Safety Report 8296807-3 (Version None)
Quarter: 2012Q2

REPORT INFORMATION
  Report Type: 
  Country: None (occurrence: None)
  Receive Date: 20120419
  Receipt Date: 20120306
  Transmission Date: 20120825
  Serious: No
  Sender: FDA-Public Use
  Company Number: US-ASTRAZENECA-2012SE14026

PATIENT
  Age: 59 Year
  Sex: Female

DRUGS (8)
  1. NEXIUM [Suspect]
     Route: 048
  2. PAXIL [Concomitant]
  3. HZT [Concomitant]
  4. ZOLPIDEM [Concomitant]
  5. DOXEPIN HCL [Concomitant]
  6. AMITRIPTYLINE HCL [Concomitant]
  7. METHADONE HCL [Concomitant]
  8. SEROQUEL [Concomitant]

REACTIONS (8)
  - FEELING ABNORMAL [None]
  - ABDOMINAL PAIN [None]
  - ANXIETY [None]
  - POST-TRAUMATIC STRESS DISORDER [None]
  - PANIC ATTACK [None]
  - MALAISE [None]
  - DRUG DOSE OMISSION [None]
  - DEPRESSION [None]
